FAERS Safety Report 14762020 (Version 2)
Quarter: 2018Q2

REPORT INFORMATION
  Report Type: Report from Study
  Country: ES (occurrence: ES)
  Receive Date: 20180416
  Receipt Date: 20180512
  Transmission Date: 20180711
  Serious: Yes (Hospitalization)
  Sender: FDA-Public Use
  Company Number: ES-ROCHE-2106423

PATIENT
  Age: 53 Year
  Sex: Male
  Weight: 87.3 kg

DRUGS (5)
  1. LEVOFLOXACIN. [Concomitant]
     Active Substance: LEVOFLOXACIN
     Route: 065
  2. RO 6874281 (FAP IL2V MAB) [Suspect]
     Active Substance: RO-6874281
     Indication: NEOPLASM
     Dosage: MOST RECENT DOSE PRIOR TO SAE: 09/APR/2018
     Route: 042
     Dates: start: 20180409
  3. CLINDAMYCIN. [Concomitant]
     Active Substance: CLINDAMYCIN
     Route: 065
  4. PARACETAMOL [Concomitant]
     Active Substance: ACETAMINOPHEN
     Route: 065
     Dates: start: 20180410
  5. BEMIPARIN [Concomitant]
     Active Substance: BEMIPARIN
     Route: 065

REACTIONS (1)
  - Asthenia [Recovered/Resolved]

NARRATIVE: CASE EVENT DATE: 20180410
